FAERS Safety Report 20577978 (Version 1)
Quarter: 2022Q1

REPORT INFORMATION
  Report Type: Spontaneous
  Country: BE (occurrence: BE)
  Receive Date: 20220310
  Receipt Date: 20220310
  Transmission Date: 20220423
  Serious: Yes (Hospitalization)
  Sender: FDA-Public Use
  Company Number: BE-MYLANLABS-2022M1018419

PATIENT
  Age: 6 Decade
  Sex: Female

DRUGS (15)
  1. VANCOMYCIN [Suspect]
     Active Substance: VANCOMYCIN
     Indication: Pneumonia
     Dosage: UNK
     Route: 065
     Dates: start: 2021, end: 2021
  2. VANCOMYCIN [Suspect]
     Active Substance: VANCOMYCIN
     Indication: Enterococcal bacteraemia
  3. VANCOMYCIN [Suspect]
     Active Substance: VANCOMYCIN
     Indication: Enterobacter bacteraemia
  4. CEFTAZIDIME [Concomitant]
     Active Substance: CEFTAZIDIME
     Indication: Pneumonia
     Dosage: UNK
     Route: 065
     Dates: start: 2021, end: 2021
  5. CEFTAZIDIME [Concomitant]
     Active Substance: CEFTAZIDIME
     Indication: Enterococcal bacteraemia
  6. CEFTAZIDIME [Concomitant]
     Active Substance: CEFTAZIDIME
     Indication: Enterobacter bacteraemia
  7. MEROPENEM [Concomitant]
     Active Substance: MEROPENEM
     Indication: Pneumonia
     Dosage: UNK
     Route: 065
     Dates: start: 2021, end: 2021
  8. MEROPENEM [Concomitant]
     Active Substance: MEROPENEM
     Indication: Enterococcal bacteraemia
  9. MEROPENEM [Concomitant]
     Active Substance: MEROPENEM
     Indication: Enterobacter bacteraemia
  10. PIPERACILLIN AND TAZOBACTAM [Concomitant]
     Active Substance: PIPERACILLIN SODIUM\TAZOBACTAM SODIUM
     Indication: Pneumonia
     Dosage: UNK
     Route: 065
     Dates: start: 2021, end: 2021
  11. PIPERACILLIN AND TAZOBACTAM [Concomitant]
     Active Substance: PIPERACILLIN SODIUM\TAZOBACTAM SODIUM
     Indication: Enterococcal bacteraemia
  12. PIPERACILLIN AND TAZOBACTAM [Concomitant]
     Active Substance: PIPERACILLIN SODIUM\TAZOBACTAM SODIUM
     Indication: Enterobacter bacteraemia
  13. CIPROFLOXACIN [Concomitant]
     Active Substance: CIPROFLOXACIN
     Indication: Pneumonia
     Dosage: UNK
     Route: 065
     Dates: start: 2021, end: 2021
  14. CIPROFLOXACIN [Concomitant]
     Active Substance: CIPROFLOXACIN
     Indication: Enterococcal bacteraemia
  15. CIPROFLOXACIN [Concomitant]
     Active Substance: CIPROFLOXACIN
     Indication: Enterobacter bacteraemia

REACTIONS (1)
  - Pathogen resistance [Unknown]

NARRATIVE: CASE EVENT DATE: 20210101
